FAERS Safety Report 9177746 (Version 1)
Quarter: 2013Q1

REPORT INFORMATION
  Report Type: Spontaneous
  Country: US (occurrence: US)
  Receive Date: 20130321
  Receipt Date: 20130321
  Transmission Date: 20140127
  Serious: No
  Sender: FDA-Public Use
  Company Number: US-B.I. PHARMACEUTICALS,INC./RIDGEFIELD-2013-BI-07317BP

PATIENT
  Age: 74 Year
  Sex: Female

DRUGS (6)
  1. SPIRIVA [Suspect]
     Indication: ASTHMA
     Dosage: 18 MCG
     Route: 055
     Dates: start: 2008
  2. PRADAXA [Suspect]
     Indication: ATRIAL FIBRILLATION
     Dosage: 300 MG
     Route: 048
     Dates: start: 201112
  3. SYMBICORT [Concomitant]
     Indication: ASTHMA
     Route: 055
  4. SOTALOL [Concomitant]
     Indication: ARRHYTHMIA
     Route: 048
  5. RYTHMOL [Concomitant]
     Indication: ARRHYTHMIA
     Route: 048
  6. LIPITOR [Concomitant]
     Indication: BLOOD CHOLESTEROL INCREASED

REACTIONS (2)
  - Dyspnoea exertional [Not Recovered/Not Resolved]
  - Product quality issue [Recovered/Resolved]
